FAERS Safety Report 18016474 (Version 2)
Quarter: 2020Q3

REPORT INFORMATION
  Report Type: Spontaneous
  Country: US (occurrence: US)
  Receive Date: 20200714
  Receipt Date: 20200917
  Transmission Date: 20201103
  Serious: Yes (Other)
  Sender: FDA-Public Use
  Company Number: US-ASTRAZENECA-2020SE86555

PATIENT
  Age: 23441 Day
  Sex: Female
  Weight: 117.9 kg

DRUGS (2)
  1. BYDUREON [Suspect]
     Active Substance: EXENATIDE
     Indication: GLYCOSYLATED HAEMOGLOBIN
     Route: 058
  2. BYDUREON [Suspect]
     Active Substance: EXENATIDE
     Indication: GLYCOSYLATED HAEMOGLOBIN
     Route: 058

REACTIONS (6)
  - Eye infection [Unknown]
  - Gastric disorder [Not Recovered/Not Resolved]
  - Product packaging quantity issue [Unknown]
  - Intentional device misuse [Unknown]
  - Malaise [Unknown]
  - Blindness [Unknown]

NARRATIVE: CASE EVENT DATE: 20200201
